FAERS Safety Report 5284932-0 (Version None)
Quarter: 2007Q2

REPORT INFORMATION
  Report Type: 
  Country: None (occurrence: None)
  Receive Date: 20070403
  Receipt Date: 20070326
  Transmission Date: 20071010
  Serious: Yes (Hospitalization)
  Sender: FDA-Public Use
  Company Number: 2007CG00501

PATIENT
  Age: 58 Year
  Sex: Male

DRUGS (5)
  1. NEXIUM [Suspect]
     Route: 048
     Dates: start: 20070110, end: 20070126
  2. NEXIUM [Suspect]
     Route: 048
     Dates: start: 20070129, end: 20070205
  3. CIPROFLOXACIN HCL [Concomitant]
     Route: 048
     Dates: start: 20070115, end: 20070123
  4. OGAST [Concomitant]
     Dates: start: 20070105, end: 20070110
  5. ASPIRIN [Concomitant]

REACTIONS (1)
  - METABOLIC ENCEPHALOPATHY [None]
